FAERS Safety Report 15241068 (Version 1)
Quarter: 2018Q3

REPORT INFORMATION
  Report Type: Spontaneous
  Country: US (occurrence: US)
  Receive Date: 20180711
  Receipt Date: 20180711
  Transmission Date: 20181010
  Serious: Yes (Death, Life-Threatening, Hospitalization, Disabling, Other)
  Sender: FDA-Public Use
  Company Number: None

PATIENT
  Age: 66 Year
  Sex: Male
  Weight: 104.4 kg

DRUGS (1)
  1. CIPROFLOXACIN. [Suspect]
     Active Substance: CIPROFLOXACIN
     Indication: DIVERTICULITIS
     Route: 048

REACTIONS (29)
  - Constipation [None]
  - Anxiety [None]
  - Irritability [None]
  - Depression [None]
  - Arrhythmia [None]
  - Burning sensation [None]
  - Dizziness [None]
  - Drug hypersensitivity [None]
  - Seizure [None]
  - Visual impairment [None]
  - Confusional state [None]
  - Paraesthesia [None]
  - Dysphonia [None]
  - Myalgia [None]
  - Restlessness [None]
  - Pain [None]
  - Hypoaesthesia [None]
  - Asthenia [None]
  - Hyperaesthesia [None]
  - Tendonitis [None]
  - Dyspepsia [None]
  - Agitation [None]
  - Insomnia [None]
  - Diarrhoea [None]
  - Abdominal pain upper [None]
  - Rash [None]
  - Feeling abnormal [None]
  - Nausea [None]
  - Arthritis [None]

NARRATIVE: CASE EVENT DATE: 20180326
